FAERS Safety Report 13590625 (Version 2)
Quarter: 2017Q2

REPORT INFORMATION
  Report Type: Spontaneous
  Country: NL (occurrence: NL)
  Receive Date: 20170530
  Receipt Date: 20170601
  Transmission Date: 20170830
  Serious: Yes (Other)
  Sender: FDA-Public Use
  Company Number: NL-BIOTEST-T 313/17

PATIENT
  Sex: Male

DRUGS (3)
  1. FOSINOPRIL [Concomitant]
     Active Substance: FOSINOPRIL
  2. IVIG US [Suspect]
     Active Substance: HUMAN IMMUNOGLOBULIN G
     Indication: CHRONIC INFLAMMATORY DEMYELINATING POLYRADICULONEUROPATHY
     Route: 041
  3. NIFEDIPINE. [Concomitant]
     Active Substance: NIFEDIPINE

REACTIONS (5)
  - Skin discolouration [Recovered/Resolved]
  - Erythema [Recovered/Resolved]
  - Erythema annulare [Recovered/Resolved]
  - Lupus-like syndrome [Recovered/Resolved]
  - Rash papular [Recovered/Resolved]
